FAERS Safety Report 8558137-1 (Version None)
Quarter: 2012Q3

REPORT INFORMATION
  Report Type: 
  Country: None (occurrence: None)
  Receive Date: 20120801
  Receipt Date: 20120410
  Transmission Date: 20120928
  Serious: Yes (Hospitalization, Other)
  Sender: FDA-Public Use
  Company Number: JP-009507513-1207JPN007451

PATIENT

DRUGS (9)
  1. MARZULENE-S [Concomitant]
     Route: 048
  2. REBETOL [Suspect]
     Route: 048
     Dates: start: 20120229, end: 20120305
  3. MUCOSTA [Concomitant]
     Indication: PROPHYLAXIS
     Route: 048
     Dates: start: 20120217
  4. PEG-INTRON [Suspect]
     Indication: HEPATITIS C
     Dosage: 100MCG/WEEK
     Route: 058
     Dates: start: 20120202, end: 20120224
  5. TELAVIC [Suspect]
     Indication: HEPATITIS C
     Route: 048
     Dates: start: 20120202, end: 20120228
  6. URSO 250 [Concomitant]
     Indication: HEPATITIS C
     Route: 048
     Dates: start: 20120315
  7. REBETOL [Suspect]
     Indication: HEPATITIS C
     Route: 048
     Dates: start: 20120202, end: 20120228
  8. TELAVIC [Suspect]
     Route: 048
     Dates: start: 20120229, end: 20120305
  9. FAMOTIDINE [Concomitant]
     Route: 048

REACTIONS (10)
  - MALAISE [None]
  - EPISTAXIS [None]
  - DYSGEUSIA [None]
  - PANCYTOPENIA [None]
  - DIARRHOEA [None]
  - HAEMOGLOBIN DECREASED [None]
  - DEPRESSIVE SYMPTOM [None]
  - WHITE BLOOD CELL COUNT DECREASED [None]
  - DECREASED APPETITE [None]
  - DRUG ERUPTION [None]
